FAERS Safety Report 14194518 (Version 4)
Quarter: 2017Q4

REPORT INFORMATION
  Report Type: Report from Study
  Country: US (occurrence: US)
  Receive Date: 20171116
  Receipt Date: 20171204
  Transmission Date: 20180321
  Serious: Yes (Hospitalization, Other)
  Sender: FDA-Public Use
  Company Number: US-GILEAD-2017-0305101

PATIENT
  Age: 26 Year
  Sex: Male

DRUGS (19)
  1. VELETRI [Concomitant]
     Active Substance: EPOPROSTENOL
  2. WARFARIN [Concomitant]
     Active Substance: WARFARIN
  3. EPOPROSTENOL. [Concomitant]
     Active Substance: EPOPROSTENOL
  4. RANITIDINE. [Concomitant]
     Active Substance: RANITIDINE
  5. AMBRISENTAN [Suspect]
     Active Substance: AMBRISENTAN
     Indication: PRODUCT USED FOR UNKNOWN INDICATION
     Dosage: 10 MG, QD
     Route: 065
     Dates: start: 20080822
  6. OMEPRAZOLE. [Concomitant]
     Active Substance: OMEPRAZOLE
  7. CETIRIZINE [Concomitant]
     Active Substance: CETIRIZINE HYDROCHLORIDE
  8. LANOLIN. [Concomitant]
     Active Substance: LANOLIN
  9. METOLAZONE. [Concomitant]
     Active Substance: METOLAZONE
  10. FLUTICASONE W/SALMETEROL [Concomitant]
     Active Substance: FLUTICASONE PROPIONATE\SALMETEROL XINAFOATE
  11. MULTIVITAMINES WITH IRON           /02170101/ [Concomitant]
  12. ADCIRCA [Concomitant]
     Active Substance: TADALAFIL
  13. FUROSEMIDE. [Concomitant]
     Active Substance: FUROSEMIDE
  14. DIGOXIN. [Concomitant]
     Active Substance: DIGOXIN
  15. CALCIUM CARBONATE. [Concomitant]
     Active Substance: CALCIUM CARBONATE
  16. SPIRONOLACTONE. [Concomitant]
     Active Substance: SPIRONOLACTONE
  17. POTASSIUM CHLORIDE. [Concomitant]
     Active Substance: POTASSIUM CHLORIDE
  18. CHOLECALCIFEROL [Concomitant]
     Active Substance: CHOLECALCIFEROL
  19. FERROUS GLUCONATE [Concomitant]
     Active Substance: FERROUS GLUCONATE

REACTIONS (2)
  - Pulmonary haemorrhage [Unknown]
  - Haemoptysis [Recovered/Resolved]

NARRATIVE: CASE EVENT DATE: 20171113
